FAERS Safety Report 25427436 (Version 1)
Quarter: 2025Q2

REPORT INFORMATION
  Report Type: Spontaneous
  Country: PT (occurrence: PT)
  Receive Date: 20250612
  Receipt Date: 20250612
  Transmission Date: 20250716
  Serious: Yes (Other)
  Sender: SANOFI AVENTIS
  Company Number: PT-SA-2025SA162861

PATIENT
  Age: 68 Year
  Sex: Female

DRUGS (1)
  1. INSULIN ASPART [Suspect]
     Active Substance: INSULIN ASPART
     Indication: Type 2 diabetes mellitus

REACTIONS (6)
  - Hyperglycaemic hyperosmolar nonketotic syndrome [Unknown]
  - Treatment noncompliance [Unknown]
  - Dyskinesia [Unknown]
  - Chorea [Unknown]
  - Hyperglycaemia [Unknown]
  - Acetonaemia [Unknown]
